FAERS Safety Report 19156347 (Version 1)
Quarter: 2021Q2

REPORT INFORMATION
  Report Type: Spontaneous
  Country: US (occurrence: US)
  Receive Date: 20210419
  Receipt Date: 20210419
  Transmission Date: 20210717
  Serious: No
  Sender: FDA-Public Use
  Company Number: US-ABBVIE-20K-163-3661208-00

PATIENT
  Age: 9 Year
  Sex: Female
  Weight: 34.5 kg

DRUGS (2)
  1. MIRALAX [Concomitant]
     Active Substance: POLYETHYLENE GLYCOL 3350
     Indication: CONSTIPATION
  2. LUPRON DEPOT?PED [Suspect]
     Active Substance: LEUPROLIDE ACETATE
     Indication: PRODUCT USED FOR UNKNOWN INDICATION
     Route: 065
     Dates: start: 201808, end: 201810

REACTIONS (9)
  - Crying [Recovered/Resolved]
  - Vaginal enlargement [Not Recovered/Not Resolved]
  - Depressed mood [Recovered/Resolved]
  - Scratch [Recovered/Resolved]
  - Abnormal behaviour [Recovered/Resolved]
  - Anger [Recovered/Resolved]
  - Emotional distress [Recovered/Resolved]
  - Feeling abnormal [Recovered/Resolved]
  - Alopecia [Not Recovered/Not Resolved]

NARRATIVE: CASE EVENT DATE: 201808
